FAERS Safety Report 16798363 (Version 1)
Quarter: 2019Q4

REPORT INFORMATION
  Report Type: Spontaneous
  Country: US (occurrence: US)
  Receive Date: 20190911
  Receipt Date: 20190911
  Transmission Date: 20200122
  Serious: Yes (Life-Threatening, Hospitalization)
  Sender: FDA-Public Use
  Company Number: None

PATIENT
  Age: 59 Year
  Sex: Male

DRUGS (6)
  1. MIRTAZAPINE. [Suspect]
     Active Substance: MIRTAZAPINE
     Indication: ANXIETY
     Route: 048
     Dates: end: 20190526
  2. RASAGILINE. [Concomitant]
     Active Substance: RASAGILINE
     Dates: start: 20190117
  3. MIRTAZAPINE. [Concomitant]
     Active Substance: MIRTAZAPINE
     Dates: start: 20190525
  4. RASAGILINE. [Suspect]
     Active Substance: RASAGILINE
     Indication: PARKINSONISM
     Route: 048
     Dates: start: 20190117, end: 20190526
  5. CARBIDOPA-LEVOFDOPA 25-100 [Concomitant]
     Dates: start: 20190502
  6. MIRTAZAPINE. [Suspect]
     Active Substance: MIRTAZAPINE
     Indication: INSOMNIA
     Route: 048
     Dates: end: 20190526

REACTIONS (3)
  - Contraindicated product administered [None]
  - Serotonin syndrome [None]
  - Drug interaction [None]

NARRATIVE: CASE EVENT DATE: 20190526
